FAERS Safety Report 6554020-1 (Version None)
Quarter: 2010Q1

REPORT INFORMATION
  Report Type: 
  Country: None (occurrence: None)
  Receive Date: 20100125
  Receipt Date: 20100125
  Transmission Date: 20100710
  Serious: Yes (Death)
  Sender: FDA-Public Use
  Company Number: None

PATIENT
  Sex: Female

DRUGS (10)
  1. REVLIMID [Suspect]
     Indication: MULTIPLE MYELOMA
     Dosage: REVLIMID 15 MG DAILY X 14/21DAYS ORAL
     Route: 048
     Dates: start: 20071031, end: 20081020
  2. REVLIMID [Suspect]
     Indication: MULTIPLE MYELOMA
     Dosage: REVLIMID 15 MG DAILY X 14/21DAYS ORAL
     Route: 048
     Dates: start: 20090525
  3. FUROSEMIDE [Concomitant]
  4. METOLAZONE [Concomitant]
  5. SPIRONOLACTONE [Concomitant]
  6. K-TAB [Concomitant]
  7. TEMAZEPAM [Concomitant]
  8. DOCUSATE SODIUM [Concomitant]
  9. OMEPRAZOLE [Concomitant]
  10. PROCHLORPERAZINE [Concomitant]

REACTIONS (2)
  - CARDIAC FAILURE CONGESTIVE [None]
  - CARDIAC FAILURE HIGH OUTPUT [None]
